FAERS Safety Report 8594611 (Version 2)
Quarter: 2012Q4

REPORT INFORMATION
  Report Type: 
  Country: FR (occurrence: FR)
  Receive Date: 20120604
  Receipt Date: 20121019
  Transmission Date: 20130627
  Serious: Yes (Life-Threatening, Hospitalization)
  Sender: FDA-Public Use
  Company Number: FR-GLAXOSMITHKLINE-B0803663A

PATIENT
  Age: 69 None
  Sex: Male

DRUGS (2)
  1. ARIXTRA [Suspect]
     Indication: THROMBOPHLEBITIS SUPERFICIAL
     Dosage: 5MG Per day
     Route: 058
     Dates: start: 20120127
  2. SIMVASTATINE [Concomitant]
     Dosage: 10MG Per day

REACTIONS (9)
  - Subdural haemorrhage [Recovered/Resolved]
  - Subdural haematoma [Recovered/Resolved]
  - Intracranial pressure increased [Recovered/Resolved]
  - Headache [Recovered/Resolved]
  - Leukocytosis [Unknown]
  - Dysarthria [Recovered/Resolved]
  - Dysphagia [Recovered/Resolved]
  - Hypoaesthesia [Unknown]
  - Prescribed overdose [Unknown]
